FAERS Safety Report 18658977 (Version 1)
Quarter: 2020Q4

REPORT INFORMATION
  Report Type: Spontaneous
  Country: US (occurrence: US)
  Receive Date: 20201224
  Receipt Date: 20201224
  Transmission Date: 20210114
  Serious: Yes (Other)
  Sender: FDA-Public Use
  Company Number: US-ROCHE-2739207

PATIENT
  Sex: Female

DRUGS (6)
  1. EVENITY [Concomitant]
     Active Substance: ROMOSOZUMAB-AQQG
  2. ORENCIA [Concomitant]
     Active Substance: ABATACEPT
  3. XOLAIR [Suspect]
     Active Substance: OMALIZUMAB
  4. XOLAIR [Suspect]
     Active Substance: OMALIZUMAB
  5. RINVOQ [Concomitant]
     Active Substance: UPADACITINIB
  6. XOLAIR [Suspect]
     Active Substance: OMALIZUMAB
     Indication: ASTHMA
     Dosage: ONGOING: NOT REPORTED
     Route: 058
     Dates: start: 20180324

REACTIONS (1)
  - Foot fracture [Unknown]
